FAERS Safety Report 7198307-0 (Version None)
Quarter: 2010Q4

REPORT INFORMATION
  Report Type: 
  Country: None (occurrence: None)
  Receive Date: 20101227
  Receipt Date: 20101214
  Transmission Date: 20110411
  Serious: Yes (Other)
  Sender: FDA-Public Use
  Company Number: PHHY2010US85106

PATIENT
  Sex: Female

DRUGS (4)
  1. MIACALCIN [Suspect]
  2. CALCIUM [Concomitant]
  3. MAGNESIUM [Concomitant]
  4. VITAMIN D [Concomitant]

REACTIONS (2)
  - OSTEOPENIA [None]
  - OSTEOPOROSIS [None]
